FAERS Safety Report 17202851 (Version 2)
Quarter: 2020Q2

REPORT INFORMATION
  Report Type: Spontaneous
  Country: US (occurrence: US)
  Receive Date: 20191226
  Receipt Date: 20200406
  Transmission Date: 20200713
  Serious: No
  Sender: FDA-Public Use
  Company Number: US-PFIZER INC-2019481288

PATIENT
  Age: 56 Year
  Sex: Female

DRUGS (1)
  1. DICLOFENAC EPOLAMINE [Suspect]
     Active Substance: DICLOFENAC EPOLAMINE
     Indication: BACK PAIN
     Dosage: 1-2 DAILY
     Route: 061
     Dates: start: 20190818

REACTIONS (5)
  - Contusion [Recovered/Resolved]
  - Skin discolouration [Recovered/Resolved]
  - Skin burning sensation [Not Recovered/Not Resolved]
  - Product adhesion issue [Unknown]
  - Scar [Not Recovered/Not Resolved]

NARRATIVE: CASE EVENT DATE: 20190830
